FAERS Safety Report 5986003-4 (Version None)
Quarter: 2008Q4

REPORT INFORMATION
  Report Type: 
  Country: None (occurrence: None)
  Receive Date: 20081209
  Receipt Date: 20081205
  Transmission Date: 20090506
  Serious: Yes (Hospitalization)
  Sender: FDA-Public Use
  Company Number: US-JNJFOC-20081202040

PATIENT
  Age: 40 Year
  Sex: Female
  Weight: 67.13 kg

DRUGS (1)
  1. ORTHO TRI-CYCLEN LO [Suspect]
     Indication: POLYCYSTIC OVARIES
     Route: 048

REACTIONS (3)
  - DIVERTICULUM [None]
  - DRUG DOSE OMISSION [None]
  - OFF LABEL USE [None]
